FAERS Safety Report 9162218 (Version 1)
Quarter: 2013Q1

REPORT INFORMATION
  Report Type: Spontaneous
  Country: DK (occurrence: None)
  Receive Date: 20130220
  Receipt Date: 20130220
  Transmission Date: 20140127
  Serious: Yes (Hospitalization)
  Sender: FDA-Public Use
  Company Number: 2013MA001219

PATIENT
  Age: 53 Year
  Sex: Female

DRUGS (7)
  1. LOSARTAN POTASSIUM [Suspect]
     Indication: HYPERTENSION
     Dates: start: 20111001, end: 20120813
  2. AMLODIPINE [Concomitant]
  3. LEVOTHYROXINE [Concomitant]
  4. NORETHISTERONE [Concomitant]
  5. SOLPADOL [Concomitant]
  6. PARACETAMOL [Concomitant]
  7. IBUPROFEN [Concomitant]

REACTIONS (4)
  - Dyspnoea [None]
  - Loss of consciousness [None]
  - Arthralgia [None]
  - Dyspnoea exertional [None]
